FAERS Safety Report 9343901 (Version 1)
Quarter: 2013Q2

REPORT INFORMATION
  Report Type: Spontaneous
  Country: US (occurrence: US)
  Receive Date: 20130612
  Receipt Date: 20130612
  Transmission Date: 20140414
  Serious: Yes (Hospitalization)
  Sender: FDA-Public Use
  Company Number: US-BAYER-2013-071451

PATIENT
  Age: 29 Year
  Sex: Female
  Weight: 145.13 kg

DRUGS (4)
  1. YAZ [Suspect]
  2. NEURONTIN [Concomitant]
     Dosage: UNK
     Route: 048
     Dates: start: 20120605
  3. TOPAMAX [Concomitant]
     Dosage: UNK
     Route: 048
     Dates: start: 20120605
  4. LEXAPRO [Concomitant]
     Dosage: UNK
     Route: 048
     Dates: start: 20120605

REACTIONS (2)
  - Pulmonary embolism [None]
  - Deep vein thrombosis [None]
